FAERS Safety Report 14123232 (Version 4)
Quarter: 2018Q2

REPORT INFORMATION
  Report Type: Report from Study
  Country: GB (occurrence: GB)
  Receive Date: 20171025
  Receipt Date: 20180619
  Transmission Date: 20180711
  Serious: Yes (Hospitalization, Other)
  Sender: FDA-Public Use
  Company Number: GB-JNJFOC-20171026492

PATIENT
  Sex: Female

DRUGS (6)
  1. QUINIDINE [Concomitant]
     Active Substance: QUINIDINE
     Route: 065
  2. STELARA [Suspect]
     Active Substance: USTEKINUMAB
     Indication: PSORIASIS
     Route: 058
  3. ASPIRIN. [Concomitant]
     Active Substance: ASPIRIN
     Route: 065
  4. LORAZEPAM. [Concomitant]
     Active Substance: LORAZEPAM
     Route: 065
  5. AMITRIPTYLINE [Concomitant]
     Active Substance: AMITRIPTYLINE
     Route: 065
  6. SERTRALINE [Concomitant]
     Active Substance: SERTRALINE HYDROCHLORIDE
     Route: 065

REACTIONS (11)
  - Vitamin B12 deficiency [Unknown]
  - Cerebral haemorrhage [Not Recovered/Not Resolved]
  - Stomatitis [Unknown]
  - Chest discomfort [Unknown]
  - Cough [Unknown]
  - Nodule [Unknown]
  - Vascular headache [Not Recovered/Not Resolved]
  - Dyspnoea [Unknown]
  - Gastrointestinal pain [Unknown]
  - Mental disorder [Unknown]
  - Somatic symptom disorder [Unknown]

NARRATIVE: CASE EVENT DATE: 2017
